FAERS Safety Report 11392308 (Version 1)
Quarter: 2015Q3

REPORT INFORMATION
  Report Type: Spontaneous
  Country: SG (occurrence: None)
  Receive Date: 20150814
  Receipt Date: 20150814
  Transmission Date: 20151125
  Serious: Yes (Hospitalization)
  Sender: FDA-Public Use
  Company Number: 2015R1-101313

PATIENT
  Age: 52 Year
  Sex: Male

DRUGS (1)
  1. BACTRIM [Suspect]
     Active Substance: SULFAMETHOXAZOLE\TRIMETHOPRIM
     Indication: CHRONIC SINUSITIS

REACTIONS (4)
  - Diabetic ketoacidosis [None]
  - Drug reaction with eosinophilia and systemic symptoms [None]
  - Type 1 diabetes mellitus [None]
  - Basedow^s disease [None]
